FAERS Safety Report 5884210-2 (Version None)
Quarter: 2008Q3

REPORT INFORMATION
  Report Type: 
  Country: None (occurrence: None)
  Receive Date: 20080915
  Receipt Date: 20080909
  Transmission Date: 20090109
  Serious: Yes (Death)
  Sender: FDA-Public Use
  Company Number: GB-ASTRAZENECA-2008GB01702

PATIENT
  Age: 77 Year
  Sex: Female

DRUGS (1)
  1. LIDOCAINE HYDROCHLORIDE [Suspect]
     Route: 042
     Dates: start: 20060901

REACTIONS (3)
  - CONVULSION [None]
  - MEDICATION ERROR [None]
  - WRONG DRUG ADMINISTERED [None]
